FAERS Safety Report 20731932 (Version 1)
Quarter: 2022Q2

REPORT INFORMATION
  Report Type: Spontaneous
  Country: US (occurrence: US)
  Receive Date: 20220420
  Receipt Date: 20220420
  Transmission Date: 20220721
  Serious: Yes (Other)
  Sender: FDA-Public Use
  Company Number: US-AMGEN-USASP2022064509

PATIENT
  Age: 69 Year
  Sex: Male

DRUGS (1)
  1. REPATHA [Suspect]
     Active Substance: EVOLOCUMAB
     Indication: Product used for unknown indication
     Dosage: 140 MILLIGRAM ADMINISTERING THREE PENS ONCE A MONTH
     Route: 065
     Dates: end: 202109

REACTIONS (3)
  - Transient ischaemic attack [Unknown]
  - Subdural haematoma [Unknown]
  - Headache [Unknown]

NARRATIVE: CASE EVENT DATE: 20220311
